FAERS Safety Report 6439620-1 (Version None)
Quarter: 2009Q4

REPORT INFORMATION
  Report Type: 
  Country: None (occurrence: None)
  Receive Date: 20091113
  Receipt Date: 20091107
  Transmission Date: 20100525
  Serious: No
  Sender: FDA-Public Use
  Company Number: B0602833A

PATIENT
  Sex: Female

DRUGS (1)
  1. NIQUITIN CQ 14MG [Suspect]
     Indication: SMOKING CESSATION THERAPY
     Route: 062
     Dates: start: 20091107, end: 20091107

REACTIONS (1)
  - PRESYNCOPE [None]
